FAERS Safety Report 5352511-2 (Version None)
Quarter: 2007Q2

REPORT INFORMATION
  Report Type: 
  Country: None (occurrence: None)
  Receive Date: 20070611
  Receipt Date: 20070606
  Transmission Date: 20071010
  Serious: Yes (Death, Life-Threatening)
  Sender: FDA-Public Use
  Company Number: DE-ASTRAZENECA-2007PK01101

PATIENT
  Age: 17797 Day
  Sex: Female
  Weight: 81 kg

DRUGS (5)
  1. NEXIUM [Suspect]
     Indication: GASTRITIS
     Route: 048
     Dates: start: 20061201, end: 20070101
  2. NEXIUM [Suspect]
     Indication: GASTRIC ULCER
     Route: 048
     Dates: start: 20061201, end: 20070101
  3. SIMVABETA [Suspect]
     Indication: OBESITY
     Route: 048
     Dates: start: 20070101, end: 20070401
  4. SIMVABETA [Suspect]
     Indication: LOW DENSITY LIPOPROTEIN INCREASED
     Route: 048
     Dates: start: 20070101, end: 20070401
  5. ALLOPURINOL [Suspect]
     Indication: HYPERURICAEMIA
     Route: 048
     Dates: start: 20070101, end: 20070401

REACTIONS (2)
  - ACUTE HEPATIC FAILURE [None]
  - RHABDOMYOLYSIS [None]
